FAERS Safety Report 4952631-8 (Version None)
Quarter: 2006Q1

REPORT INFORMATION
  Report Type: 
  Country: None (occurrence: None)
  Receive Date: 20060320
  Receipt Date: 20060302
  Transmission Date: 20060701
  Serious: Yes (Hospitalization)
  Sender: FDA-Public Use
  Company Number: DSA_60716_2006

PATIENT
  Age: 4 Year
  Sex: Female

DRUGS (2)
  1. DIASTAT [Suspect]
     Indication: CONVULSION
     Dosage: 5 MG PRN RC
     Route: 054
  2. LAMICTAL [Concomitant]

REACTIONS (2)
  - CONVULSION [None]
  - INCORRECT DOSE ADMINISTERED [None]
